FAERS Safety Report 21024395 (Version 1)
Quarter: 2022Q2

REPORT INFORMATION
  Report Type: Spontaneous
  Country: CA (occurrence: CA)
  Receive Date: 20220629
  Receipt Date: 20220629
  Transmission Date: 20220721
  Serious: Yes (Life-Threatening, Hospitalization)
  Sender: FDA-Public Use
  Company Number: CA-PFIZER INC-202200907678

PATIENT
  Age: 1 Year
  Sex: Female
  Weight: 10 kg

DRUGS (23)
  1. VINCRISTINE SULFATE [Suspect]
     Active Substance: VINCRISTINE SULFATE
     Indication: Sarcoma
     Dosage: 0.7 MG
     Route: 041
  2. DOXORUBICIN HYDROCHLORIDE [Suspect]
     Active Substance: DOXORUBICIN HYDROCHLORIDE
     Indication: Sarcoma
     Dosage: 14 MG
     Route: 042
  3. COSMEGEN [Suspect]
     Active Substance: DACTINOMYCIN
     Indication: Sarcoma
     Dosage: 500 UG
     Route: 041
  4. IFOSFAMIDE [Suspect]
     Active Substance: IFOSFAMIDE
     Indication: Sarcoma
     Dosage: 1400 MG
     Route: 041
  5. AMIKACIN SULFATE [Concomitant]
     Active Substance: AMIKACIN SULFATE
  6. AMLODIPINE [Concomitant]
     Active Substance: AMLODIPINE BESYLATE
     Route: 065
  7. AMOXICILLIN [Concomitant]
     Active Substance: AMOXICILLIN
  8. DEXAMETHASONE [Concomitant]
     Active Substance: DEXAMETHASONE
     Dosage: UNK
     Route: 014
  9. GRANULOCYTE COLONY-STIMULATING FACTOR NOS [Concomitant]
     Active Substance: GRANULOCYTE COLONY-STIMULATING FACTOR NOS
  10. MELATONIN [Concomitant]
     Active Substance: MELATONIN
  11. MEROPENEM [Concomitant]
     Active Substance: MEROPENEM
  12. MESNA [Concomitant]
     Active Substance: MESNA
  13. MYCAMINE [Concomitant]
     Active Substance: MICAFUNGIN SODIUM
  14. NIFEDIPINE [Concomitant]
     Active Substance: NIFEDIPINE
  15. OLANZAPINE [Concomitant]
     Active Substance: OLANZAPINE
     Dosage: UNK
  16. ONDANSETRON [Concomitant]
     Active Substance: ONDANSETRON
  17. PIPERACILLIN SODIUM\TAZOBACTAM SODIUM [Concomitant]
     Active Substance: PIPERACILLIN SODIUM\TAZOBACTAM SODIUM
  18. POLYETHYLENE GLYCOLS [Concomitant]
     Active Substance: POLYETHYLENE GLYCOLS
  19. PRAZOSIN [Concomitant]
     Active Substance: PRAZOSIN
  20. SODIUM [Concomitant]
     Active Substance: SODIUM
  21. TRANEXAMIC ACID [Concomitant]
     Active Substance: TRANEXAMIC ACID
  22. SULFAMETHOXAZOLE\TRIMETHOPRIM [Concomitant]
     Active Substance: SULFAMETHOXAZOLE\TRIMETHOPRIM
  23. ZINECARD [Concomitant]
     Active Substance: DEXRAZOXANE HYDROCHLORIDE
     Dosage: UNK
     Route: 042

REACTIONS (1)
  - Aplastic anaemia [Recovered/Resolved]
